FAERS Safety Report 4625649-2 (Version None)
Quarter: 2005Q1

REPORT INFORMATION
  Report Type: 
  Country: None (occurrence: None)
  Receive Date: 20050330
  Receipt Date: 20050314
  Transmission Date: 20050727
  Serious: Yes (Other)
  Sender: FDA-Public Use
  Company Number: DE_050315476

PATIENT
  Age: 67 Year
  Sex: Female

DRUGS (1)
  1. GEMZAR [Suspect]
     Indication: PANCREATIC CARCINOMA METASTATIC
     Dosage: 1000 MG/M2
     Dates: start: 20040801

REACTIONS (4)
  - ANAEMIA [None]
  - HAEMOLYSIS [None]
  - HYPERTENSION [None]
  - THROMBOTIC MICROANGIOPATHY [None]
